FAERS Safety Report 5899567-6 (Version None)
Quarter: 2008Q3

REPORT INFORMATION
  Report Type: 
  Country: None (occurrence: None)
  Receive Date: 20080926
  Receipt Date: 20080916
  Transmission Date: 20090109
  Serious: Yes (Hospitalization, Other)
  Sender: FDA-Public Use
  Company Number: PHEH2006US03542

PATIENT
  Sex: Male
  Weight: 74.829 kg

DRUGS (43)
  1. ZOMETA [Suspect]
     Indication: METASTASES TO BONE
     Dosage: UNK, MONTHLY
     Dates: start: 20030101, end: 20051101
  2. PERCOCET [Concomitant]
  3. NORVASC [Concomitant]
  4. DOXAZOSIN MESYLATE [Concomitant]
     Dosage: 8 MG, DAILY
  5. CELEXA [Concomitant]
     Indication: DEPRESSION
     Dosage: 40 MG, DAILY
  6. ZOCOR [Concomitant]
  7. ACYCLOVIR [Concomitant]
     Dosage: 200 MG, UNK
  8. TEVETEN [Concomitant]
  9. OXYCONTIN [Concomitant]
     Dosage: 70 MG, BID
  10. LUPRON [Concomitant]
     Dosage: UNK
     Dates: start: 20030101
  11. LEXAPRO [Concomitant]
     Indication: DEPRESSION
     Dosage: 20 MG, BID
     Route: 048
  12. LEXAPRO [Concomitant]
     Dosage: 20 MG, DAILY
  13. ENALAPRIL MALEATE [Concomitant]
     Dosage: 5 MG, BID
  14. PROTONIX [Concomitant]
     Dosage: 40 MG, BID
  15. LOPRESSOR [Concomitant]
     Dosage: 25 MG, AM
  16. ZOVIRAX [Concomitant]
     Dosage: 200 MG, AM
  17. PERIDEX [Concomitant]
     Dosage: UNK
  18. PAXIL [Concomitant]
     Dosage: 20 MG, BID
  19. FOLIC ACID [Concomitant]
     Dosage: 1 MG, DAILY
  20. ZOLADEX [Concomitant]
     Dosage: 200 MG, DAILY
  21. METOCLOPRAMIDE [Concomitant]
     Dosage: 10 MG, BEDTIME
  22. POTASSIUM CHLORIDE [Concomitant]
     Dosage: 10 MEQ, DAILY
  23. LASIX [Concomitant]
     Dosage: 20 MG, AM
  24. CLONIDINE [Concomitant]
     Dosage: 0.2 MG, Q24H
     Route: 062
  25. ASPIRIN [Concomitant]
     Dosage: 325 MG, AM
  26. BUSPAR [Concomitant]
     Dosage: 20 MG, BID
  27. TRAZODONE HCL [Concomitant]
     Dosage: 150 MG, BEDTIME
  28. OXYCODONE HCL [Concomitant]
     Dosage: 5 MG, MAX 70MG DAILY
  29. THIAMINE HCL [Concomitant]
  30. RITALIN [Concomitant]
     Dosage: 5 MG, TID
  31. LISINOPRIL [Concomitant]
     Dosage: 20 MG, DAILY
  32. CAMPRAL [Concomitant]
     Dosage: 656 MG, BID
  33. PREVACID [Concomitant]
     Dosage: 30 MG, UNK
  34. VASOTEC [Concomitant]
     Dosage: 5 MG, UNK
  35. MULTIVITAMIN ^LAPPE^ [Concomitant]
  36. FENTANYL [Concomitant]
     Dosage: 25 MCG
  37. NORCO [Concomitant]
     Dosage: 5/325 MG
  38. CEFEPIME [Concomitant]
     Dosage: 1 G, UNK
  39. CARDURA                                 /IRE/ [Concomitant]
  40. DOXYCYCLINE [Concomitant]
  41. IMDUR [Concomitant]
  42. RISPERDAL [Concomitant]
  43. SKELAXIN [Concomitant]

REACTIONS (70)
  - ABSCESS DRAINAGE [None]
  - ANGIOPATHY [None]
  - ANOREXIA [None]
  - ANXIETY [None]
  - AORTIC ANEURYSM [None]
  - ASTHENIA [None]
  - BACK PAIN [None]
  - BIOPSY [None]
  - BONE DEBRIDEMENT [None]
  - BONE DISORDER [None]
  - BONE GRAFT [None]
  - BONE OPERATION [None]
  - COLONOSCOPY [None]
  - COMPUTERISED TOMOGRAM ABNORMAL [None]
  - CONFUSIONAL STATE [None]
  - DECUBITUS ULCER [None]
  - DRUG ADMINISTRATION ERROR [None]
  - DRUG DETOXIFICATION [None]
  - DYSPHAGIA [None]
  - DYSPNOEA [None]
  - ENDOSCOPY [None]
  - FATIGUE [None]
  - FEEDING TUBE COMPLICATION [None]
  - FEELING OF DESPAIR [None]
  - GASTRITIS [None]
  - GASTROINTESTINAL TUBE INSERTION [None]
  - HAEMATEMESIS [None]
  - HAEMATOCRIT DECREASED [None]
  - HEAD INJURY [None]
  - HYPERTENSION [None]
  - ILIAC ARTERY STENOSIS [None]
  - INFECTION [None]
  - INFLAMMATION [None]
  - INJURY [None]
  - INTENTIONAL SELF-INJURY [None]
  - INTERMITTENT CLAUDICATION [None]
  - JAW OPERATION [None]
  - JOINT INJURY [None]
  - JOINT SURGERY [None]
  - LARGE INTESTINAL ULCER [None]
  - LOSS OF CONSCIOUSNESS [None]
  - MALAISE [None]
  - MALIGNANT NEOPLASM PROGRESSION [None]
  - MEMORY IMPAIRMENT [None]
  - MUSCULOSKELETAL CHEST PAIN [None]
  - MUSCULOSKELETAL PAIN [None]
  - NAUSEA [None]
  - ORTHOSTATIC HYPOTENSION [None]
  - OSTEOMYELITIS [None]
  - OSTEONECROSIS [None]
  - PAIN IN EXTREMITY [None]
  - PAIN IN JAW [None]
  - PERFORMANCE STATUS DECREASED [None]
  - RADIATION INJURY [None]
  - RADIOTHERAPY [None]
  - RED BLOOD CELL COUNT DECREASED [None]
  - ROAD TRAFFIC ACCIDENT [None]
  - SCAN ABNORMAL [None]
  - SKIN LESION [None]
  - SLEEP DISORDER [None]
  - SPEECH DISORDER [None]
  - STENT PLACEMENT [None]
  - SUICIDAL IDEATION [None]
  - SUICIDE ATTEMPT [None]
  - SURGERY [None]
  - TEARFULNESS [None]
  - TOOTH LOSS [None]
  - VASCULAR INSUFFICIENCY [None]
  - WEIGHT DECREASED [None]
  - WOUND DRAINAGE [None]
